FAERS Safety Report 7797683-5 (Version None)
Quarter: 2011Q4

REPORT INFORMATION
  Report Type: 
  Country: None (occurrence: None)
  Receive Date: 20111003
  Receipt Date: 20110920
  Transmission Date: 20120403
  Serious: Yes (Other)
  Sender: FDA-Public Use
  Company Number: DSA_47536_2011

PATIENT
  Sex: Female

DRUGS (3)
  1. WELLBUTRIN [Suspect]
     Indication: PRODUCT USED FOR UNKNOWN INDICATION
     Dosage: (DF ORAL)
     Route: 048
     Dates: start: 20101108, end: 20110820
  2. EFFEXOR [Suspect]
     Indication: ANXIETY
     Dosage: (150 MG, DAILY ORAL)
     Route: 048
     Dates: start: 20110201, end: 20110820
  3. EFFEXOR [Suspect]
     Indication: DEPRESSION
     Dosage: (150 MG, DAILY ORAL)
     Route: 048
     Dates: start: 20110201, end: 20110820

REACTIONS (7)
  - SCAB [None]
  - PRURITUS [None]
  - SKIN DISCOLOURATION [None]
  - PAIN [None]
  - VISUAL ACUITY REDUCED [None]
  - IMPAIRED HEALING [None]
  - RASH ERYTHEMATOUS [None]
